FAERS Safety Report 23976614 (Version 2)
Quarter: 2024Q4

REPORT INFORMATION
  Report Type: Spontaneous
  Country: US (occurrence: US)
  Receive Date: 20240614
  Receipt Date: 20241008
  Transmission Date: 20250115
  Serious: Yes (Hospitalization, Other)
  Sender: RANBAXY
  Company Number: US-SUN PHARMACEUTICAL INDUSTRIES LTD-2024R1-450320

PATIENT
  Age: 74 Year
  Sex: Male

DRUGS (2)
  1. BACTRIM DS [Suspect]
     Active Substance: SULFAMETHOXAZOLE\TRIMETHOPRIM
     Indication: Abscess
     Dosage: UNK
     Route: 065
  2. CEPHALEXIN [Concomitant]
     Active Substance: CEPHALEXIN
     Indication: Abscess
     Dosage: UNK
     Route: 065

REACTIONS (1)
  - Acute kidney injury [Unknown]

NARRATIVE: CASE EVENT DATE: 20240519
